FAERS Safety Report 10024551 (Version 1)
Quarter: 2014Q1

REPORT INFORMATION
  Report Type: Report from Study
  Country: US (occurrence: US)
  Receive Date: 20140320
  Receipt Date: 20140320
  Transmission Date: 20141002
  Serious: Yes (Hospitalization, Other)
  Sender: FDA-Public Use
  Company Number: US-ABBVIE-14P-163-1212404-00

PATIENT
  Sex: Female

DRUGS (1)
  1. HUMIRA [Suspect]
     Indication: PRODUCT USED FOR UNKNOWN INDICATION

REACTIONS (7)
  - Meniscus injury [Unknown]
  - Cardiac operation [Unknown]
  - Ligament rupture [Unknown]
  - Unevaluable event [Unknown]
  - Pneumonia [Unknown]
  - Pyrexia [Unknown]
  - Sinusitis [Unknown]
